FAERS Safety Report 19270124 (Version 2)
Quarter: 2022Q3

REPORT INFORMATION
  Report Type: Spontaneous
  Country: US (occurrence: US)
  Receive Date: 20210518
  Receipt Date: 20220714
  Transmission Date: 20221027
  Serious: No
  Sender: FDA-Public Use
  Company Number: US-PFIZER INC-2021401157

PATIENT
  Age: 36 Year
  Sex: Female

DRUGS (3)
  1. XELJANZ XR [Suspect]
     Active Substance: TOFACITINIB CITRATE
     Indication: Rheumatoid arthritis
     Dosage: 11 MG, 1X/DAY
     Route: 048
     Dates: start: 2019, end: 20210406
  2. XELJANZ XR [Suspect]
     Active Substance: TOFACITINIB CITRATE
     Dosage: 11 MG, 1X/DAY (TAKE 1 TABLET MY MOUTH ONCE DAILY)
     Route: 048
     Dates: start: 202104
  3. HUMIRA [Suspect]
     Active Substance: ADALIMUMAB
     Dosage: UNK

REACTIONS (9)
  - Limb injury [Unknown]
  - Peripheral swelling [Unknown]
  - Eye pain [Recovering/Resolving]
  - Pain in extremity [Not Recovered/Not Resolved]
  - Animal bite [Recovered/Resolved]
  - Impaired healing [Recovered/Resolved]
  - Urinary tract infection [Unknown]
  - Therapeutic product effect incomplete [Unknown]
  - Suspected COVID-19 [Unknown]

NARRATIVE: CASE EVENT DATE: 20210401
